FAERS Safety Report 18554597 (Version 2)
Quarter: 2021Q1

REPORT INFORMATION
  Report Type: Spontaneous
  Country: US (occurrence: US)
  Receive Date: 20201127
  Receipt Date: 20210104
  Transmission Date: 20210419
  Serious: No
  Sender: FDA-Public Use
  Company Number: US-BAUSCH-BL-2020-033162

PATIENT
  Age: 38 Year
  Sex: Female
  Weight: 61.29 kg

DRUGS (3)
  1. WELLBUTRIN XL [Suspect]
     Active Substance: BUPROPION HYDROCHLORIDE
     Dosage: TOOK EVERY OTHER DAY TO MAKE IT STRETCH OUT
     Route: 048
     Dates: end: 202011
  2. WELLBUTRIN XL [Suspect]
     Active Substance: BUPROPION HYDROCHLORIDE
     Dosage: RESTARTED
     Route: 048
     Dates: start: 2020
  3. WELLBUTRIN XL [Suspect]
     Active Substance: BUPROPION HYDROCHLORIDE
     Indication: DEPRESSION
     Dosage: USUAL DOSE
     Route: 048
     Dates: start: 2005

REACTIONS (4)
  - Therapy interrupted [Unknown]
  - Intentional product use issue [Unknown]
  - Product availability issue [Unknown]
  - Feeling abnormal [Recovered/Resolved]

NARRATIVE: CASE EVENT DATE: 202011
